FAERS Safety Report 7683669-8 (Version None)
Quarter: 2011Q3

REPORT INFORMATION
  Report Type: 
  Country: None (occurrence: None)
  Receive Date: 20110815
  Receipt Date: 20110805
  Transmission Date: 20111222
  Serious: Yes (Other)
  Sender: FDA-Public Use
  Company Number: US-MPIJNJ-2011-03440

PATIENT
  Age: 57 Year
  Sex: Male
  Weight: 83 kg

DRUGS (1)
  1. VELCADE [Suspect]
     Indication: KAPOSI'S SARCOMA AIDS RELATED
     Dosage: 0.75 MG/M2, CYCLIC
     Route: 040
     Dates: start: 20100517

REACTIONS (1)
  - BLOOD CHOLESTEROL INCREASED [None]
